FAERS Safety Report 23137716 (Version 4)
Quarter: 2023Q4

REPORT INFORMATION
  Report Type: Report from Study
  Country: GB (occurrence: GB)
  Receive Date: 20231102
  Receipt Date: 20231221
  Transmission Date: 20240110
  Serious: Yes (Other)
  Sender: FDA-Public Use
  Company Number: GB-TEVA-2023-GB-2941138

PATIENT
  Age: 32 Year

DRUGS (2)
  1. COPAXONE [Suspect]
     Active Substance: GLATIRAMER ACETATE
     Indication: Multiple sclerosis
     Route: 065
  2. COPAXONE [Suspect]
     Active Substance: GLATIRAMER ACETATE
     Indication: Multiple sclerosis
     Dosage: DOSAGE TEXT: FORM STRENGTH AND UNIT DOSE: 40 MG/ML
     Route: 065
     Dates: start: 20231025

REACTIONS (13)
  - Injection site haemorrhage [Recovering/Resolving]
  - Injection site erythema [Not Recovered/Not Resolved]
  - Injection site mass [Not Recovered/Not Resolved]
  - Injection site warmth [Not Recovered/Not Resolved]
  - Body temperature increased [Unknown]
  - Lack of injection site rotation [Unknown]
  - Cough [Unknown]
  - Chills [Unknown]
  - Myalgia [Unknown]
  - Lip swelling [Recovered/Resolved]
  - Malaise [Unknown]
  - Fatigue [Unknown]
  - Pain [Unknown]

NARRATIVE: CASE EVENT DATE: 20230101
